FAERS Safety Report 4889597-5 (Version None)
Quarter: 2006Q1

REPORT INFORMATION
  Report Type: 
  Country: None (occurrence: None)
  Receive Date: 20060120
  Receipt Date: 20060110
  Transmission Date: 20060701
  Serious: Yes (Life-Threatening)
  Sender: FDA-Public Use
  Company Number: 2005173182

PATIENT
  Age: 73 Year
  Sex: Male
  Weight: 50 kg

DRUGS (8)
  1. VFEND [Suspect]
     Indication: BRONCHOPULMONARY ASPERGILLOSIS
     Dosage: 600 MG (300 MG, 2 IN 1 D), ORAL
     Route: 048
     Dates: start: 20051125, end: 20051214
  2. VFEND [Suspect]
     Indication: CANDIDIASIS
     Dosage: 600 MG (300 MG, 2 IN 1 D), ORAL
     Route: 048
     Dates: start: 20051125, end: 20051214
  3. MAXIPIME [Concomitant]
  4. SULPERAZON                   (CEFOPERAZONE, SULBACTAM) [Concomitant]
  5. CLINDAMYCIN HCL [Concomitant]
  6. ITRACONAZOLE [Concomitant]
  7. MINOCYCLINE HCL [Concomitant]
  8. PAZUCROSS (PAZUFLOXACIN) [Concomitant]

REACTIONS (1)
  - INTERSTITIAL LUNG DISEASE [None]
